FAERS Safety Report 24159007 (Version 2)
Quarter: 2024Q3

REPORT INFORMATION
  Report Type: Spontaneous
  Country: CH (occurrence: CH)
  Receive Date: 20240731
  Receipt Date: 20240802
  Transmission Date: 20241016
  Serious: Yes (Hospitalization)
  Sender: MYLAN
  Company Number: CH-MYLANLABS-2024M1069189

PATIENT
  Age: 8 Decade
  Sex: Female

DRUGS (5)
  1. TORSEMIDE [Suspect]
     Active Substance: TORSEMIDE
     Indication: Product used for unknown indication
     Dosage: UNK
     Route: 065
  2. PANTOPRAZOLE [Suspect]
     Active Substance: PANTOPRAZOLE
     Indication: Product used for unknown indication
     Dosage: UNK
     Route: 065
  3. FERINJECT [Suspect]
     Active Substance: FERRIC CARBOXYMALTOSE
     Indication: Iron deficiency anaemia
     Dosage: UNK
     Route: 065
  4. DENOSUMAB [Suspect]
     Active Substance: DENOSUMAB
     Indication: Osteoporosis postmenopausal
     Dosage: UNK, EVERY SIX MONTHS
     Route: 065
  5. ASPIRIN [Concomitant]
     Active Substance: ASPIRIN
     Dosage: UNK
     Route: 065

REACTIONS (4)
  - Status epilepticus [Unknown]
  - Partial seizures [Unknown]
  - Epilepsy [Unknown]
  - Electrolyte imbalance [Unknown]
